FAERS Safety Report 9707915 (Version 1)
Quarter: 2013Q4

REPORT INFORMATION
  Report Type: Spontaneous
  Country: CA (occurrence: None)
  Receive Date: 20131122
  Receipt Date: 20131122
  Transmission Date: 20140711
  Serious: Yes (Other)
  Sender: FDA-Public Use
  Company Number: None

PATIENT
  Age: 56 Year
  Sex: Male
  Weight: 65.32 kg

DRUGS (3)
  1. LYRICA [Suspect]
     Dosage: 1 CAPSULE TID ORAL
     Route: 048
     Dates: start: 20130828, end: 20131121
  2. WELLBUTRIN [Concomitant]
  3. LORAZEPAM [Concomitant]

REACTIONS (2)
  - Delusion [None]
  - Hallucination [None]
